FAERS Safety Report 8288721-4 (Version None)
Quarter: 2012Q2

REPORT INFORMATION
  Report Type: 
  Country: None (occurrence: None)
  Receive Date: 20120417
  Receipt Date: 20120405
  Transmission Date: 20120825
  Serious: No
  Sender: FDA-Public Use
  Company Number: US-BIOGENIDEC-2012BI000373

PATIENT
  Sex: Male

DRUGS (2)
  1. REBIF [Concomitant]
     Indication: PRODUCT USED FOR UNKNOWN INDICATION
  2. TYSABRI [Suspect]
     Indication: MULTIPLE SCLEROSIS
     Route: 042
     Dates: start: 20100330, end: 20110701

REACTIONS (5)
  - ARTHRALGIA [None]
  - FATIGUE [None]
  - SECONDARY PROGRESSIVE MULTIPLE SCLEROSIS [None]
  - BLISTER [None]
  - MOBILITY DECREASED [None]
